FAERS Safety Report 4690468-8 (Version None)
Quarter: 2005Q2

REPORT INFORMATION
  Report Type: 
  Country: None (occurrence: None)
  Receive Date: 20050614
  Receipt Date: 20050614
  Transmission Date: 20051028
  Serious: Yes (Other)
  Sender: FDA-Public Use
  Company Number: None

PATIENT
  Age: 66 Year
  Sex: Female
  Weight: 70.3529 kg

DRUGS (6)
  1. REMIFEMIN TABLET (CIMICIFUGA) [Suspect]
     Indication: MENOPAUSE
     Dosage: ORAL
     Route: 048
     Dates: start: 20010101
  2. OESTRADIOL (FORMULATION UNKNOWN) (ESTRADIOL) [Suspect]
     Indication: HORMONE REPLACEMENT THERAPY
     Dosage: PER DAY
  3. NORETHINDRONE ACETATE [Suspect]
     Indication: HORMONE REPLACEMENT THERAPY
     Dosage: 5 MG/ PER DAY/
  4. LANSOPRAZOLE [Concomitant]
  5. THYROXINE SODIUM [Concomitant]
  6. ATENOLOL [Concomitant]

REACTIONS (6)
  - DISEASE RECURRENCE [None]
  - DRUG INEFFECTIVE [None]
  - HOT FLUSH [None]
  - POSTMENOPAUSAL HAEMORRHAGE [None]
  - UTERINE DISORDER [None]
  - UTERINE POLYP [None]
